FAERS Safety Report 6192711-5 (Version None)
Quarter: 2009Q2

REPORT INFORMATION
  Report Type: 
  Country: None (occurrence: None)
  Receive Date: 20090518
  Receipt Date: 20090508
  Transmission Date: 20091009
  Serious: Yes (Death, Other)
  Sender: FDA-Public Use
  Company Number: GB-ROCHE-632458

PATIENT
  Age: 36 Year
  Sex: Female

DRUGS (6)
  1. CAPECITABINE [Suspect]
     Indication: DRUG USE FOR UNKNOWN INDICATION
     Route: 065
     Dates: start: 20080310, end: 20080701
  2. HERCEPTIN [Suspect]
     Indication: BREAST CANCER
     Dosage: ADJUVANT THERAPY
     Route: 065
     Dates: end: 20070301
  3. HERCEPTIN [Suspect]
     Route: 065
     Dates: start: 20080114
  4. VINORELBINE [Concomitant]
     Dates: start: 20080114
  5. TAXOTERE [Concomitant]
     Indication: BREAST CANCER
     Dosage: ADJUVANT THERAPY
  6. TAMOXIFEN CITRATE [Concomitant]

REACTIONS (2)
  - DEATH [None]
  - METASTASES TO LIVER [None]
